FAERS Safety Report 15635307 (Version 1)
Quarter: 2018Q4

REPORT INFORMATION
  Report Type: Report from Study
  Country: IT (occurrence: IT)
  Receive Date: 20181120
  Receipt Date: 20181120
  Transmission Date: 20190205
  Serious: Yes (Hospitalization)
  Sender: FDA-Public Use
  Company Number: IT-TEVA-2018-IT-976279

PATIENT
  Age: 78 Year
  Sex: Female

DRUGS (5)
  1. RIVOTRIL [Suspect]
     Active Substance: CLONAZEPAM
     Indication: INTENTIONAL OVERDOSE
     Route: 048
  2. OMEPRAZEN (OMEPRAZOLE) [Suspect]
     Active Substance: OMEPRAZOLE
     Indication: INTENTIONAL OVERDOSE
     Route: 048
  3. PAROXETINE. [Suspect]
     Active Substance: PAROXETINE
     Indication: INTENTIONAL OVERDOSE
     Route: 048
  4. TACHIFENE 500 MG/150 MG COMPRESSE RIVESTITE CON FILM [Suspect]
     Active Substance: ACETAMINOPHEN\IBUPROFEN
     Indication: INTENTIONAL OVERDOSE
     Route: 048
  5. RAMIPRIL. [Suspect]
     Active Substance: RAMIPRIL
     Indication: INTENTIONAL OVERDOSE
     Route: 048

REACTIONS (2)
  - Intentional overdose [Recovered/Resolved]
  - Hypotension [Recovered/Resolved]

NARRATIVE: CASE EVENT DATE: 20181026
